FAERS Safety Report 6736148-6 (Version None)
Quarter: 2010Q2

REPORT INFORMATION
  Report Type: 
  Country: None (occurrence: None)
  Receive Date: 20100521
  Receipt Date: 20100511
  Transmission Date: 20101027
  Serious: Yes (Other)
  Sender: FDA-Public Use
  Company Number: RS-ROCHE-702247

PATIENT
  Sex: Female

DRUGS (3)
  1. HERCEPTIN [Suspect]
     Indication: BREAST CANCER
     Dosage: DOSE 6MG/KG
     Route: 042
     Dates: start: 20090828
  2. HERCEPTIN [Suspect]
     Route: 042
     Dates: start: 20100201
  3. HERCEPTIN [Suspect]
     Route: 042
     Dates: start: 20100419

REACTIONS (1)
  - PANCREATITIS ACUTE [None]
